FAERS Safety Report 8821474 (Version 1)
Quarter: 2012Q4

REPORT INFORMATION
  Report Type: 
  Country: DE (occurrence: DE)
  Receive Date: 20121002
  Receipt Date: 20121002
  Transmission Date: 20130627
  Serious: Yes (Other)
  Sender: FDA-Public Use
  Company Number: GXKR2012DE003079

PATIENT
  Sex: Female

DRUGS (1)
  1. ALENDRON-HEXAL [Suspect]
     Indication: OSTEOPOROSIS
     Dosage: UNK UKN, UNK
     Route: 048
     Dates: start: 201208

REACTIONS (2)
  - Anaemia [Not Recovered/Not Resolved]
  - Thrombocytopenia [Not Recovered/Not Resolved]
